FAERS Safety Report 23102975 (Version 1)
Quarter: 2023Q4

REPORT INFORMATION
  Report Type: Spontaneous
  Country: ES (occurrence: ES)
  Receive Date: 20231025
  Receipt Date: 20231025
  Transmission Date: 20240109
  Serious: Yes (Other)
  Sender: FDA-Public Use
  Company Number: ES-SUN PHARMACEUTICAL INDUSTRIES LTD-2023RR-414320

PATIENT
  Age: 68 Year
  Sex: Male

DRUGS (6)
  1. TRABECTEDIN [Suspect]
     Active Substance: TRABECTEDIN
     Indication: Extraskeletal myxoid chondrosarcoma
     Dosage: FOUR CYCLES
     Route: 065
     Dates: start: 201906
  2. TRABECTEDIN [Suspect]
     Active Substance: TRABECTEDIN
     Dosage: 20 CYCLES
     Route: 065
  3. SUNITINIB [Suspect]
     Active Substance: SUNITINIB
     Indication: Extraskeletal myxoid chondrosarcoma
     Dosage: UNK
     Route: 065
  4. PAZOPANIB [Suspect]
     Active Substance: PAZOPANIB
     Indication: Extraskeletal myxoid chondrosarcoma
     Dosage: 800 MG OD
     Route: 065
  5. DOXORUBICIN [Suspect]
     Active Substance: DOXORUBICIN
     Indication: Extraskeletal myxoid chondrosarcoma
     Dosage: 6 CYCLES
     Route: 065
     Dates: start: 201601, end: 201604
  6. NIVOLUMAB [Suspect]
     Active Substance: NIVOLUMAB
     Indication: Extraskeletal myxoid chondrosarcoma
     Dosage: UNK
     Route: 065

REACTIONS (6)
  - Dyspnoea [Unknown]
  - Therapeutic product effect incomplete [Unknown]
  - Anaemia [Unknown]
  - Disease progression [Unknown]
  - Neutropenia [Unknown]
  - Drug ineffective [Unknown]
